FAERS Safety Report 16012623 (Version 5)
Quarter: 2020Q4

REPORT INFORMATION
  Report Type: Spontaneous
  Country: US (occurrence: US)
  Receive Date: 20190227
  Receipt Date: 20201023
  Transmission Date: 20210113
  Serious: Yes (Hospitalization, Other)
  Sender: FDA-Public Use
  Company Number: US-ASTRAZENECA-2019SE32228

PATIENT
  Age: 77 Year
  Sex: Female
  Weight: 54.4 kg

DRUGS (5)
  1. PREDNISONE. [Suspect]
     Active Substance: PREDNISONE
     Indication: ASTHMA
     Route: 055
  2. PREDNISONE. [Suspect]
     Active Substance: PREDNISONE
     Indication: ASTHMA
     Route: 055
  3. FASENRA [Suspect]
     Active Substance: BENRALIZUMAB
     Indication: ASTHMA
     Route: 058
  4. FASENRA [Suspect]
     Active Substance: BENRALIZUMAB
     Indication: ASTHMA
     Route: 058
  5. SYMBICORT [Suspect]
     Active Substance: BUDESONIDE\FORMOTEROL FUMARATE DIHYDRATE
     Indication: DYSPNOEA
     Dosage: 160/4.5 MCG, UNKNOWN UNKNOWN
     Route: 055

REACTIONS (25)
  - Peripheral swelling [Recovering/Resolving]
  - Diarrhoea [Unknown]
  - Alopecia [Recovered/Resolved]
  - Product dose omission issue [Unknown]
  - Fall [Unknown]
  - Osteoporosis [Unknown]
  - Cataract [Unknown]
  - Joint injury [Recovering/Resolving]
  - Pneumonia [Recovering/Resolving]
  - Speech disorder [Recovering/Resolving]
  - Balance disorder [Unknown]
  - Frustration tolerance decreased [Unknown]
  - Abdominal distension [Recovering/Resolving]
  - Lung disorder [Recovering/Resolving]
  - Dyspnoea [Recovering/Resolving]
  - Blindness unilateral [Unknown]
  - Breath sounds abnormal [Unknown]
  - Pain [Unknown]
  - Abdominal pain upper [Unknown]
  - Depression [Recovered/Resolved]
  - Stress [Unknown]
  - Glaucoma [Unknown]
  - Eye pain [Unknown]
  - Weight increased [Recovering/Resolving]
  - Onychoclasis [Unknown]

NARRATIVE: CASE EVENT DATE: 2018
